FAERS Safety Report 13990534 (Version 1)
Quarter: 2017Q3

REPORT INFORMATION
  Report Type: Spontaneous
  Country: US (occurrence: US)
  Receive Date: 20170920
  Receipt Date: 20170920
  Transmission Date: 20171128
  Serious: No
  Sender: FDA-Public Use
  Company Number: US-PFIZER INC-2017401267

PATIENT
  Age: 44 Year
  Sex: Female

DRUGS (1)
  1. DETROL LA [Suspect]
     Active Substance: TOLTERODINE TARTRATE
     Dosage: ONE EVERY 3-4 DAYS

REACTIONS (4)
  - Abdominal pain upper [Unknown]
  - Intentional product misuse [Unknown]
  - Back pain [Unknown]
  - Cystitis [Unknown]
